FAERS Safety Report 5722365-0 (Version None)
Quarter: 2008Q2

REPORT INFORMATION
  Report Type: 
  Country: None (occurrence: None)
  Receive Date: 20080429
  Receipt Date: 20070718
  Transmission Date: 20081010
  Serious: No
  Sender: FDA-Public Use
  Company Number: US-ASTRAZENECA-2007UW17009

PATIENT
  Age: 77 Year
  Sex: Male

DRUGS (10)
  1. NEXIUM [Suspect]
     Indication: OESOPHAGEAL DISORDER
     Route: 048
     Dates: start: 20070711
  2. PLAVIX [Concomitant]
  3. LIPITOR [Concomitant]
  4. ATENOLOL [Concomitant]
  5. ZETIA [Concomitant]
  6. NAPROSYN [Concomitant]
  7. IRON [Concomitant]
  8. AVANDIA [Concomitant]
  9. ACTOS [Concomitant]
  10. PRILOSEC OTC [Concomitant]

REACTIONS (1)
  - BLOOD GLUCOSE INCREASED [None]
